FAERS Safety Report 23960524 (Version 1)
Quarter: 2024Q2

REPORT INFORMATION
  Report Type: Spontaneous
  Country: FR (occurrence: FR)
  Receive Date: 20240611
  Receipt Date: 20240611
  Transmission Date: 20240715
  Serious: Yes (Hospitalization)
  Sender: FDA-Public Use
  Company Number: FR-SUN PHARMACEUTICAL INDUSTRIES LTD-2024RR-450920

PATIENT
  Age: 39 Year
  Sex: Male

DRUGS (13)
  1. ALLOPURINOL [Suspect]
     Active Substance: ALLOPURINOL
     Indication: Cytokine release syndrome
     Dosage: 300 MILLIGRAM, DAILY
     Route: 048
     Dates: start: 20240223, end: 20240301
  2. OXALIPLATIN [Suspect]
     Active Substance: OXALIPLATIN
     Indication: Angiocentric lymphoma
     Dosage: 235 MILLIGRAM, TOTAL 1
     Route: 040
     Dates: start: 20240228, end: 20240228
  3. VALACYCLOVIR [Suspect]
     Active Substance: VALACYCLOVIR HYDROCHLORIDE
     Indication: Antiviral prophylaxis
     Dosage: 1000 MILLIGRAM, DAILY
     Route: 048
     Dates: start: 20240227, end: 20240229
  4. VIREAD [Suspect]
     Active Substance: TENOFOVIR DISOPROXIL FUMARATE
     Indication: Hepatitis B virus test positive
     Dosage: 245 MILLIGRAM, DAILY
     Route: 048
     Dates: start: 20240226, end: 20240301
  5. METHOTREXATE [Suspect]
     Active Substance: METHOTREXATE
     Indication: Angiocentric lymphoma
     Dosage: 4100 MILLIGRAM, TOTAL 1
     Route: 040
     Dates: start: 20240227, end: 20240227
  6. ONCASPAR [Suspect]
     Active Substance: PEGASPARGASE
     Indication: Angiocentric lymphoma
     Dosage: 3600 INTERNATIONAL UNIT, TOTAL 1
     Route: 040
     Dates: start: 20240228, end: 20240228
  7. ATOVAQUONE [Suspect]
     Active Substance: ATOVAQUONE
     Indication: Antifungal prophylaxis
     Dosage: 1500 MILLIGRAM, DAILY
     Route: 048
     Dates: start: 20240227, end: 20240229
  8. IVERMECTIN [Suspect]
     Active Substance: IVERMECTIN
     Indication: Parasitic infection prophylaxis
     Dosage: 12 MILLIGRAM, TOTAL 1
     Route: 048
     Dates: start: 20240226, end: 20240226
  9. DEXAMETHASONE [Suspect]
     Active Substance: DEXAMETHASONE
     Indication: Angiocentric lymphoma
     Dosage: 40 MILLIGRAM, DAILY
     Route: 048
     Dates: start: 20240227, end: 20240228
  10. ONDANSETRON [Concomitant]
     Active Substance: ONDANSETRON
     Indication: Product used for unknown indication
     Dosage: 16 MILLIGRAM, DAILY
     Route: 040
     Dates: start: 20240227
  11. FOLIC ACID [Concomitant]
     Active Substance: FOLIC ACID
     Indication: Product used for unknown indication
     Dosage: 5 MILLIGRAM, DAILY
     Route: 048
     Dates: start: 20240227
  12. LOVENOX 4000 IU anti-Xa/0.4 ml, solution for injection in pre-filled s [Concomitant]
     Indication: Product used for unknown indication
     Dosage: 1 DOSAGE FORM, DAILY
     Route: 058
     Dates: start: 20240226
  13. GEMCITABINE [Concomitant]
     Active Substance: GEMCITABINE
     Indication: Product used for unknown indication
     Dosage: 820 MILLIGRAM, TOTAL 1
     Route: 040
     Dates: start: 20240227, end: 20240227

REACTIONS (1)
  - Hepatic cytolysis [Recovered/Resolved]

NARRATIVE: CASE EVENT DATE: 20240229
